FAERS Safety Report 16104197 (Version 7)
Quarter: 2020Q1

REPORT INFORMATION
  Report Type: Spontaneous
  Country: US (occurrence: US)
  Receive Date: 20190322
  Receipt Date: 20200106
  Transmission Date: 20200409
  Serious: No
  Sender: FDA-Public Use
  Company Number: US-PFIZER INC-2019117669

PATIENT
  Age: 34 Year
  Sex: Female
  Weight: 48 kg

DRUGS (6)
  1. LYRICA [Suspect]
     Active Substance: PREGABALIN
     Indication: FIBROMYALGIA
     Dosage: 75 MG, DAILY (ONE IN THE MORNING AND TWO IN THE AFTERNOON)
     Route: 048
  2. LYRICA [Suspect]
     Active Substance: PREGABALIN
     Dosage: UNK, 2X/DAY [SHE TAKES 1/3 OF HER DOSE IN THE MORNING AND 2/3 IN THE EVENING]
  3. LYRICA [Suspect]
     Active Substance: PREGABALIN
     Dosage: 75 MG, 4X/DAY
     Route: 048
  4. LYRICA [Suspect]
     Active Substance: PREGABALIN
     Indication: PAIN
     Dosage: UNK, ALTERNATE DAY
  5. LYRICA [Suspect]
     Active Substance: PREGABALIN
     Dosage: 75 MG, 3X/DAY
     Route: 048
  6. LYRICA [Suspect]
     Active Substance: PREGABALIN
     Indication: MYALGIA
     Dosage: 945 MG, DAILY (ONE 315 MG IN THE MORNING AND 2 315 MG IN THE EVENING)
     Route: 048

REACTIONS (12)
  - Fatigue [Unknown]
  - Bedridden [Unknown]
  - Influenza like illness [Unknown]
  - Overdose [Unknown]
  - Post-traumatic stress disorder [Unknown]
  - Loss of personal independence in daily activities [Unknown]
  - Vomiting [Unknown]
  - Mental disorder [Unknown]
  - Nausea [Unknown]
  - Withdrawal syndrome [Unknown]
  - Hyperhidrosis [Unknown]
  - Malaise [Unknown]
